FAERS Safety Report 19614469 (Version 3)
Quarter: 2021Q3

REPORT INFORMATION
  Report Type: Spontaneous
  Country: DK (occurrence: DK)
  Receive Date: 20210727
  Receipt Date: 20210801
  Transmission Date: 20211014
  Serious: Yes (Hospitalization, Other)
  Sender: FDA-Public Use
  Company Number: DK-LUNDBECK-DKLU3035978

PATIENT
  Age: 62 Year
  Sex: Male
  Weight: 88 kg

DRUGS (5)
  1. LACOSAMIDE. [Interacting]
     Active Substance: LACOSAMIDE
     Indication: EPILEPSY
     Dosage: 300 MG, QD
     Route: 048
     Dates: start: 20200304
  2. LAMOTRIGINE. [Interacting]
     Active Substance: LAMOTRIGINE
     Indication: PAIN
     Dosage: 400 MG, QD
     Route: 048
     Dates: start: 20141103
  3. FRISIUM [Suspect]
     Active Substance: CLOBAZAM
     Indication: EPILEPSY
     Dosage: 20 MG, QD
     Route: 048
     Dates: start: 20190306
  4. LACOSAMIDE. [Interacting]
     Active Substance: LACOSAMIDE
     Indication: EPILEPSY
     Dosage: 50 MG, QD
     Route: 048
     Dates: start: 20201008
  5. LAMOTRIGINE. [Interacting]
     Active Substance: LAMOTRIGINE
     Indication: EPILEPSY
     Dosage: 50 MG, QD
     Route: 048
     Dates: start: 20131117

REACTIONS (7)
  - Thrombosis [Not Recovered/Not Resolved]
  - Petechiae [Recovered/Resolved]
  - Vasculitis [Recovered/Resolved]
  - Erythema multiforme [Recovered/Resolved]
  - Thrombocytopenia [Not Recovered/Not Resolved]
  - Stevens-Johnson syndrome [Recovered/Resolved]
  - Drug interaction [Unknown]

NARRATIVE: CASE EVENT DATE: 20210609
